FAERS Safety Report 7879261-2 (Version None)
Quarter: 2011Q4

REPORT INFORMATION
  Report Type: 
  Country: None (occurrence: None)
  Receive Date: 20111101
  Receipt Date: 20111021
  Transmission Date: 20120403
  Serious: Yes (Death)
  Sender: FDA-Public Use
  Company Number: JP-JNJFOC-20111011253

PATIENT
  Sex: Male

DRUGS (4)
  1. MINOXIDIL [Suspect]
     Indication: ANDROGENETIC ALOPECIA
     Route: 061
     Dates: start: 20100415
  2. ETANERCEPT [Concomitant]
     Indication: CONNECTIVE TISSUE DISORDER
     Route: 065
  3. MINOXIDIL [Suspect]
     Route: 061
  4. ETANERCEPT [Concomitant]
     Indication: RHEUMATOID ARTHRITIS
     Route: 065

REACTIONS (1)
  - INTERSTITIAL LUNG DISEASE [None]
